FAERS Safety Report 23651400 (Version 1)
Quarter: 2024Q1

REPORT INFORMATION
  Report Type: Spontaneous
  Country: CN (occurrence: CN)
  Receive Date: 20240320
  Receipt Date: 20240320
  Transmission Date: 20240409
  Serious: Yes (Other)
  Sender: FDA-Public Use
  Company Number: CN-Jiangsu Hansoh Pharmaceutical Co., Ltd-2154564

PATIENT
  Age: 36 Year
  Sex: Male

DRUGS (3)
  1. DECITABINE [Suspect]
     Active Substance: DECITABINE
  2. VENETOCLAX [Suspect]
     Active Substance: VENETOCLAX
  3. VORICONAZOLE [Suspect]
     Active Substance: VORICONAZOLE

REACTIONS (2)
  - Tumour lysis syndrome [Recovered/Resolved]
  - Off label use [Unknown]
